FAERS Safety Report 19265586 (Version 2)
Quarter: 2021Q2

REPORT INFORMATION
  Report Type: Spontaneous
  Country: US (occurrence: US)
  Receive Date: 20210517
  Receipt Date: 20210629
  Transmission Date: 20210717
  Serious: No
  Sender: FDA-Public Use
  Company Number: US-PFIZER INC-2021447823

PATIENT
  Age: 64 Year
  Sex: Female
  Weight: 62.14 kg

DRUGS (1)
  1. PREMARIN [Suspect]
     Active Substance: ESTROGENS, CONJUGATED
     Indication: URINARY INCONTINENCE
     Dosage: 0.625MG, 1 GRAM VAGINALLY
     Route: 067
     Dates: start: 202101

REACTIONS (3)
  - Off label use [Unknown]
  - Device delivery system issue [Unknown]
  - Drug effective for unapproved indication [Unknown]
